FAERS Safety Report 25412535 (Version 1)
Quarter: 2025Q2

REPORT INFORMATION
  Report Type: Spontaneous
  Country: US (occurrence: US)
  Receive Date: 20250609
  Receipt Date: 20250609
  Transmission Date: 20250717
  Serious: Yes (Hospitalization)
  Sender: MERCK SHARP & DOHME LLC
  Company Number: US-009507513-2292416

PATIENT
  Age: 63 Year
  Sex: Male

DRUGS (1)
  1. KEYTRUDA [Suspect]
     Active Substance: PEMBROLIZUMAB
     Indication: Lung neoplasm malignant
     Dosage: INFUSION EVERY 3 WEEKS
     Route: 050

REACTIONS (6)
  - Dyspnoea [Unknown]
  - Asthenia [Unknown]
  - Cough [Unknown]
  - Fatigue [Unknown]
  - Muscular weakness [Unknown]
  - Pain [Unknown]

NARRATIVE: CASE EVENT DATE: 20250401
